FAERS Safety Report 4712952-0 (Version None)
Quarter: 2005Q3

REPORT INFORMATION
  Report Type: 
  Country: None (occurrence: None)
  Receive Date: 20050712
  Receipt Date: 20050712
  Transmission Date: 20060218
  Serious: Yes (Life-Threatening, Hospitalization)
  Sender: FDA-Public Use
  Company Number: None

PATIENT
  Sex: Male
  Weight: 45 kg

DRUGS (8)
  1. DACTINOMYCIN [Suspect]
     Indication: RHABDOMYOSARCOMA
     Dosage: 2 MG   Q 6 WEEKS   INTRAVENOU
     Route: 042
     Dates: start: 20050106, end: 20050425
  2. CYCLOPHOSPHAMIDE [Suspect]
     Indication: RHABDOMYOSARCOMA
     Dosage: INTRAVENOU
     Route: 042
     Dates: start: 20050106, end: 20050613
  3. ABDOMINAL RADIATION [Concomitant]
  4. BACTRIM DS [Concomitant]
  5. MIRALAX [Concomitant]
  6. CELEBREX [Concomitant]
  7. PALONOSETRON [Concomitant]
  8. VALTREX [Concomitant]

REACTIONS (1)
  - VENOOCCLUSIVE DISEASE [None]
